FAERS Safety Report 21533795 (Version 1)
Quarter: 2022Q4

REPORT INFORMATION
  Report Type: Spontaneous
  Country: GB (occurrence: GB)
  Receive Date: 20221101
  Receipt Date: 20221101
  Transmission Date: 20230112
  Serious: Yes (Hospitalization, Other)
  Sender: FDA-Public Use
  Company Number: None

PATIENT
  Age: 69 Year

DRUGS (12)
  1. MIRTAZAPINE [Suspect]
     Active Substance: MIRTAZAPINE
     Indication: Product used for unknown indication
     Dosage: 15 MILLIGRAM, HS (AT NIGHT (DISSOLVE ON THE TONGUE))
     Route: 060
  2. ATORVASTATIN [Concomitant]
     Active Substance: ATORVASTATIN
     Dosage: 20 MILLIGRAM, QD
     Route: 065
  3. BISOPROLOL [Concomitant]
     Active Substance: BISOPROLOL
     Dosage: 2.5 MILLIGRAM, QD
     Route: 065
  4. YELLOW SOFT PARAFFIN [Concomitant]
     Dosage: UNK
     Route: 065
  5. PARAFFIN\WAX, EMULSIFYING [Concomitant]
     Active Substance: PARAFFIN\WAX, EMULSIFYING
     Dosage: UNK
     Route: 065
  6. FOLIC ACID [Concomitant]
     Active Substance: FOLIC ACID
     Dosage: 5 MILLIGRAM, QD
     Route: 065
  7. LACTULOSE [Concomitant]
     Active Substance: LACTULOSE
     Indication: Constipation
     Dosage: 3 DOSAGE FORM, PRN (5ML SPOONFUL^S- MAINTAIN GOOD FLUID INTAKE WHILST TAKING 500 ML
     Route: 048
  8. LANSOPRAZOLE [Concomitant]
     Active Substance: LANSOPRAZOLE
     Dosage: 1 DOSAGE FORM, QD (AT NIGHT (DISSOLVE ON THE TONGUE))
     Route: 060
  9. ACETAMINOPHEN [Concomitant]
     Active Substance: ACETAMINOPHEN
     Dosage: UNK, PRN
     Route: 065
  10. SPIRONOLACTONE [Concomitant]
     Active Substance: SPIRONOLACTONE
     Dosage: 100 MILLIGRAM, QD
     Route: 065
  11. THIAMINE [Concomitant]
     Active Substance: THIAMINE
     Dosage: 100 MILLIGRAM, TID
     Route: 065
  12. Hydromol [Concomitant]
     Dosage: UNK, PRN (APPLY TO SKIN OR USE AS A SOAP SUBSTITUTE 500 GRAM)
     Route: 065

REACTIONS (1)
  - Jaundice [Unknown]
